FAERS Safety Report 5713493-4 (Version None)
Quarter: 2008Q2

REPORT INFORMATION
  Report Type: 
  Country: None (occurrence: None)
  Receive Date: 20080422
  Receipt Date: 20080413
  Transmission Date: 20081010
  Serious: Yes (Hospitalization, Other)
  Sender: FDA-Public Use
  Company Number: US-PFIZER INC-2008032806

PATIENT
  Sex: Female

DRUGS (1)
  1. EXUBERA [Suspect]
     Indication: DIABETES MELLITUS
     Route: 055

REACTIONS (4)
  - CARDIAC FAILURE [None]
  - DEVICE MALFUNCTION [None]
  - DEVICE MISUSE [None]
  - PARKINSON'S DISEASE [None]
